FAERS Safety Report 16230357 (Version 1)
Quarter: 2019Q2

REPORT INFORMATION
  Report Type: Spontaneous
  Country: US (occurrence: US)
  Receive Date: 20190423
  Receipt Date: 20190423
  Transmission Date: 20190711
  Serious: No
  Sender: FDA-Public Use
  Company Number: US-LEXICON PHARMACEUTICALS, INC-19-1606-00418

PATIENT
  Age: 76 Year
  Sex: Male

DRUGS (1)
  1. TELOTRISTAT ETHYL [Suspect]
     Active Substance: TELOTRISTAT ETHYL
     Indication: CARCINOID TUMOUR OF THE SMALL BOWEL
     Route: 048
     Dates: start: 20180201

REACTIONS (14)
  - Platelet count decreased [Unknown]
  - Neutrophil count decreased [Unknown]
  - Red cell distribution width increased [Unknown]
  - Blood potassium increased [Unknown]
  - Red blood cell count decreased [Unknown]
  - Haemoglobin decreased [Unknown]
  - Mean cell volume abnormal [Unknown]
  - Weight decreased [Unknown]
  - Blood alkaline phosphatase increased [Unknown]
  - Abdominal pain [Unknown]
  - Haematocrit decreased [Unknown]
  - Back pain [Unknown]
  - White blood cell count decreased [Unknown]
  - Fatigue [Unknown]

NARRATIVE: CASE EVENT DATE: 20190211
